FAERS Safety Report 7785462-4 (Version None)
Quarter: 2011Q3

REPORT INFORMATION
  Report Type: 
  Country: None (occurrence: None)
  Receive Date: 20110929
  Receipt Date: 20110926
  Transmission Date: 20111222
  Serious: Yes (Hospitalization, Other)
  Sender: FDA-Public Use
  Company Number: US-ABBOTT-11P-163-0848640-00

PATIENT
  Sex: Female
  Weight: 89.438 kg

DRUGS (1)
  1. HUMIRA [Suspect]
     Indication: CROHN'S DISEASE
     Route: 058
     Dates: start: 20100921, end: 20110729

REACTIONS (12)
  - PYREXIA [None]
  - IMMUNE SYSTEM DISORDER [None]
  - HERPES VIRUS INFECTION [None]
  - ORAL DISORDER [None]
  - COLONIC STENOSIS [None]
  - FATIGUE [None]
  - LEUKOPENIA [None]
  - HAEMOGLOBIN DECREASED [None]
  - BLOOD CALCIUM DECREASED [None]
  - NORMOCHROMIC NORMOCYTIC ANAEMIA [None]
  - WHITE BLOOD CELL COUNT DECREASED [None]
  - NAUSEA [None]
